FAERS Safety Report 10100732 (Version 2)
Quarter: 2014Q2

REPORT INFORMATION
  Report Type: Report from Study
  Country: JP (occurrence: JP)
  Receive Date: 20140423
  Receipt Date: 20140515
  Transmission Date: 20141212
  Serious: Yes (Death, Other)
  Sender: FDA-Public Use
  Company Number: PHHY2014JP049501

PATIENT
  Age: 3 Year
  Sex: Male

DRUGS (6)
  1. CERTICAN [Suspect]
     Indication: PROPHYLAXIS AGAINST TRANSPLANT REJECTION
     Dosage: 0.5 MG, UNK
     Route: 048
     Dates: start: 20111227, end: 20120326
  2. NEORAL [Suspect]
     Indication: PROPHYLAXIS AGAINST TRANSPLANT REJECTION
     Dosage: UNK UKN, UNK
     Route: 048
  3. PROGRAF [Concomitant]
     Indication: HEART TRANSPLANT
     Dosage: 1.2 MG, UNK
     Route: 048
     Dates: start: 20111227
  4. PROGRAF [Concomitant]
     Dosage: 1.5 MG, UNK
     Route: 048
  5. PROGRAF [Concomitant]
     Dosage: 1.8 MG, UNK
     Route: 048
     Dates: end: 20121126
  6. URALYT [Concomitant]
     Dosage: 2 DF, UNK
     Route: 048
     Dates: start: 20120112

REACTIONS (2)
  - Post transplant lymphoproliferative disorder [Fatal]
  - Blood alkaline phosphatase increased [Unknown]
